FAERS Safety Report 8588427-8 (Version None)
Quarter: 2012Q3

REPORT INFORMATION
  Report Type: 
  Country: None (occurrence: None)
  Receive Date: 20120813
  Receipt Date: 20120808
  Transmission Date: 20120928
  Serious: No
  Sender: FDA-Public Use
  Company Number: US-PFIZER INC-2012193678

PATIENT
  Age: 72 Year
  Sex: Female
  Weight: 109 kg

DRUGS (2)
  1. GLEEVEC [Concomitant]
     Indication: HEPATIC NEOPLASM MALIGNANT
     Dosage: UNK
  2. LYRICA [Suspect]
     Indication: PAIN
     Dosage: UNK, 1X/DAY
     Route: 048
     Dates: start: 20120725, end: 20120801

REACTIONS (2)
  - DRUG EFFECT DECREASED [None]
  - PAIN [None]
